FAERS Safety Report 8138481-2 (Version None)
Quarter: 2012Q1

REPORT INFORMATION
  Report Type: 
  Country: None (occurrence: None)
  Receive Date: 20120215
  Receipt Date: 20120212
  Transmission Date: 20120608
  Serious: Yes (Other)
  Sender: FDA-Public Use
  Company Number: US-PFIZER INC-2012037756

PATIENT
  Sex: Female

DRUGS (2)
  1. ZOLOFT [Suspect]
     Dosage: 50 MG, UNK
     Dates: start: 20120201
  2. ZOLOFT [Suspect]
     Indication: PANIC ATTACK
     Dosage: 25 MG, UNK
     Dates: start: 20120101, end: 20120201

REACTIONS (5)
  - HYPERHIDROSIS [None]
  - MOUTH ULCERATION [None]
  - TREMOR [None]
  - SUICIDAL IDEATION [None]
  - GINGIVAL BLEEDING [None]
